FAERS Safety Report 18994186 (Version 2)
Quarter: 2021Q2

REPORT INFORMATION
  Report Type: Spontaneous
  Country: DE (occurrence: DE)
  Receive Date: 20210311
  Receipt Date: 20210402
  Transmission Date: 20210717
  Serious: Yes (Life-Threatening, Hospitalization, Disabling)
  Sender: FDA-Public Use
  Company Number: DE-BIOGEN-2021BI00988146

PATIENT
  Age: 37 Year
  Sex: Female
  Weight: 97 kg

DRUGS (2)
  1. PLEGRIDY [Suspect]
     Active Substance: PEGINTERFERON BETA-1A
     Indication: MULTIPLE SCLEROSIS
     Route: 058
     Dates: start: 201903, end: 202009
  2. ENOXAPARIN [Suspect]
     Active Substance: ENOXAPARIN
     Indication: THROMBOSIS
     Dosage: 2X10000
     Route: 058

REACTIONS (5)
  - Renal infarct [Unknown]
  - Drug ineffective [Unknown]
  - Renal artery thrombosis [Not Recovered/Not Resolved]
  - Aortic thrombosis [Unknown]
  - Thrombosis [Unknown]

NARRATIVE: CASE EVENT DATE: 2019
